FAERS Safety Report 13807539 (Version 2)
Quarter: 2017Q4

REPORT INFORMATION
  Report Type: Report from Study
  Country: IT (occurrence: IT)
  Receive Date: 20170728
  Receipt Date: 20171024
  Transmission Date: 20180320
  Serious: Yes (Hospitalization, Other)
  Sender: FDA-Public Use
  Company Number: IT-ASTRAZENECA-2017SE76404

PATIENT
  Age: 71 Year
  Sex: Male

DRUGS (5)
  1. TICAGRELOR. [Suspect]
     Active Substance: TICAGRELOR
     Indication: ACUTE CORONARY SYNDROME
     Route: 048
     Dates: start: 20150110, end: 20150912
  2. TOTALIP [Concomitant]
     Active Substance: ATORVASTATIN
  3. ACETYLSALICYLIC ACID [Suspect]
     Active Substance: ASPIRIN
     Indication: ACUTE CORONARY SYNDROME
     Dosage: NON-AZ PRODUCT, MAINTENANCE THERAPY WHICH STARTED PRIOR TO INDEX PROCEDURE
     Route: 048
     Dates: end: 20150208
  4. PEPTAZOL [Concomitant]
     Active Substance: PANTOPRAZOLE SODIUM
  5. PROCORALAN [Concomitant]
     Active Substance: IVABRADINE
     Dosage: 5 MG X 2

REACTIONS (2)
  - Vascular stent restenosis [Recovered/Resolved]
  - Vascular stent restenosis [Recovered/Resolved]

NARRATIVE: CASE EVENT DATE: 20150915
